FAERS Safety Report 24787609 (Version 1)
Quarter: 2024Q4

REPORT INFORMATION
  Report Type: Report from Study
  Country: US (occurrence: US)
  Receive Date: 20241230
  Receipt Date: 20241230
  Transmission Date: 20250115
  Serious: Yes (Hospitalization, Other)
  Sender: ABBVIE
  Company Number: US-ABBVIE-6040038

PATIENT
  Age: 58 Year
  Sex: Female
  Weight: 86 kg

DRUGS (10)
  1. HUMIRA [Suspect]
     Active Substance: ADALIMUMAB
     Indication: Crohn^s disease
     Dosage: FORM STRENGTH: 40 MILLIGRAM
     Route: 058
     Dates: start: 20240606, end: 20240927
  2. HUMIRA [Suspect]
     Active Substance: ADALIMUMAB
     Dosage: FORM STRENGTH: 40 MILLIGRAM
     Route: 058
     Dates: start: 20241206
  3. ZOLPIDEM [Concomitant]
     Active Substance: ZOLPIDEM TARTRATE
     Indication: Sleep disorder
     Dosage: FREQUENCY TEXT: AT NIGHT
     Route: 065
  4. EQUATE WOMEN^S 50 PLUS ONE DAILY [Concomitant]
     Indication: Vitamin supplementation
     Dosage: EQUATE ONE DAILY WOMEN^S MULTIVITAMIN
  5. CALCIUM PLUS D3 [Concomitant]
     Indication: Mineral supplementation
     Dosage: CALCIUM PLUS D
  6. CARVEDILOL [Concomitant]
     Active Substance: CARVEDILOL
     Indication: Hypertension
  7. ZETIA [Concomitant]
     Active Substance: EZETIMIBE
     Indication: Blood cholesterol abnormal
     Route: 065
  8. CITALOPRAM [Concomitant]
     Active Substance: CITALOPRAM
     Indication: Anxiety
     Route: 065
  9. PANTOPRAZOLE [Concomitant]
     Active Substance: PANTOPRAZOLE
     Indication: Gastrooesophageal reflux disease
     Route: 065
  10. FARXIGA [Concomitant]
     Active Substance: DAPAGLIFLOZIN PROPANEDIOL
     Indication: Renal disorder
     Route: 065

REACTIONS (9)
  - Enteritis [Recovered/Resolved]
  - Gait disturbance [Recovered/Resolved]
  - Dysuria [Recovered/Resolved]
  - Weight decreased [Recovered/Resolved]
  - Blood iron decreased [Not Recovered/Not Resolved]
  - Bladder cyst [Recovered/Resolved]
  - Micturition urgency [Recovered/Resolved]
  - Sleep deficit [Recovered/Resolved]
  - Gastrointestinal disorder [Recovered/Resolved]

NARRATIVE: CASE EVENT DATE: 20240101
